FAERS Safety Report 4392863-3 (Version None)
Quarter: 2004Q3

REPORT INFORMATION
  Report Type: 
  Country: None (occurrence: None)
  Receive Date: 20040702
  Receipt Date: 20040618
  Transmission Date: 20050211
  Serious: Yes (Hospitalization, Disabling)
  Sender: FDA-Public Use
  Company Number: RENA-11017

PATIENT
  Age: 65 Year
  Sex: Male
  Weight: 71.5 kg

DRUGS (16)
  1. RENAGEL [Suspect]
     Indication: HYPERPHOSPHATAEMIA
     Dosage: 0.25 G TID PO
     Route: 048
     Dates: start: 20040220, end: 20040407
  2. ISOSORBIDE MONONITRATE [Concomitant]
  3. TEMOCAPRIL HYDROCHLORIDE [Concomitant]
  4. AMLODIPINE BESYLATE [Concomitant]
  5. VALSARTAN [Concomitant]
  6. POTASSIUM CITRATE [Concomitant]
  7. SODIUM CITRATE [Concomitant]
  8. MECOBALAMIN [Concomitant]
  9. CARBAZOCHROME SODIUM SULFONATE [Concomitant]
  10. CALCIUM CARBONATE [Concomitant]
  11. ASPIRIN [Concomitant]
  12. CALCIUM POLYSTYRENE SULFONATE [Concomitant]
  13. SORBITOL [Concomitant]
  14. BETAMETHASONE, CHLORPHENIRAMINE MALEATE [Concomitant]
  15. CALCITRIOL [Concomitant]
  16. SENNA FRUIT, SENNA LEAF, RUBIA ROOT TINCTURE, ACHILLEA, TARAXACUM OFFI [Concomitant]

REACTIONS (11)
  - ABDOMINAL OPERATION [None]
  - DIVERTICULUM INTESTINAL [None]
  - ENDOTOXIC SHOCK [None]
  - FAECES HARD [None]
  - HAEMODIALYSIS [None]
  - ILEUS [None]
  - INTESTINAL OBSTRUCTION [None]
  - INTESTINAL PERFORATION [None]
  - PERITONITIS [None]
  - POST PROCEDURAL COMPLICATION [None]
  - PROCEDURAL COMPLICATION [None]
